FAERS Safety Report 13296743 (Version 1)
Quarter: 2017Q1

REPORT INFORMATION
  Report Type: Report from Study
  Country: US (occurrence: US)
  Receive Date: 20170306
  Receipt Date: 20170306
  Transmission Date: 20170428
  Serious: Yes (Other)
  Sender: FDA-Public Use
  Company Number: US-GILEAD-2017-0260677

PATIENT
  Age: 56 Year
  Sex: Male
  Weight: 45.35 kg

DRUGS (1)
  1. AMBRISENTAN [Suspect]
     Active Substance: AMBRISENTAN
     Indication: PRODUCT USED FOR UNKNOWN INDICATION
     Dosage: 5 MG, QD
     Route: 065

REACTIONS (6)
  - Malaise [Recovering/Resolving]
  - Headache [Unknown]
  - Pain [Unknown]
  - Neoplasm malignant [Unknown]
  - Gout [Unknown]
  - Paraesthesia [Unknown]
